FAERS Safety Report 4524056-0 (Version None)
Quarter: 2004Q4

REPORT INFORMATION
  Report Type: 
  Country: None (occurrence: None)
  Receive Date: 20041119
  Receipt Date: 20040820
  Transmission Date: 20050328
  Serious: No
  Sender: FDA-Public Use
  Company Number: PHEH2004US09038

PATIENT
  Age: 79 Year
  Sex: Female

DRUGS (3)
  1. ZELNORM [Suspect]
     Indication: ABDOMINAL DISTENSION
     Dosage: 6MG, QD, ORAL
     Route: 048
     Dates: start: 20040818, end: 20040819
  2. ZELNORM [Suspect]
     Indication: ABDOMINAL DISTENSION
     Dosage: 6MG, QD, ORAL
     Route: 048
     Dates: start: 20040811
  3. ACIPHEX [Concomitant]

REACTIONS (3)
  - ABDOMINAL PAIN UPPER [None]
  - INSOMNIA [None]
  - OESOPHAGEAL PAIN [None]
